FAERS Safety Report 9179994 (Version 1)
Quarter: 2013Q1

REPORT INFORMATION
  Report Type: Spontaneous
  Country: MX (occurrence: MX)
  Receive Date: 20130321
  Receipt Date: 20130321
  Transmission Date: 20140127
  Serious: Yes (Death, Hospitalization, Other)
  Sender: FDA-Public Use
  Company Number: PHHY2012MX128164

PATIENT
  Age: 83 Year
  Sex: Female

DRUGS (5)
  1. CO-DIOVAN [Suspect]
     Indication: HYPERTENSION
     Dosage: 1 DF (320 MG VALS AND 12.5MG HCTZ), PER DAY
     Route: 048
     Dates: start: 20120909, end: 20120918
  2. CO-DIOVAN [Suspect]
     Dosage: 1 DF (320 MG VALS AND 12.5MG HCTZ), PER DAY
     Route: 048
     Dates: start: 20120926, end: 20121110
  3. AMLODIPINE [Concomitant]
     Indication: CARDIAC DISORDER
     Dosage: 1 DF (5MG), PER DAY
     Route: 048
     Dates: start: 20120923
  4. AMIODARONE [Concomitant]
     Indication: SYSTOLIC HYPERTENSION
     Dosage: 1DF (200MG), PER DAY
     Route: 048
  5. SINTROM [Concomitant]
     Indication: ANTICOAGULANT THERAPY
     Dosage: 0.25 DF (4MG), PER DAY
     Route: 048
     Dates: start: 20120919

REACTIONS (10)
  - Death [Fatal]
  - Mitral valve disease [Unknown]
  - Left ventricular hypertrophy [Unknown]
  - Aortic valve incompetence [Unknown]
  - Tricuspid valve incompetence [Unknown]
  - Angina pectoris [Unknown]
  - Hyperhidrosis [Unknown]
  - Abdominal pain [Unknown]
  - Joint swelling [Unknown]
  - Local swelling [Unknown]
